FAERS Safety Report 11802892 (Version 2)
Quarter: 2015Q4

REPORT INFORMATION
  Report Type: Report from Study
  Country: CO (occurrence: CO)
  Receive Date: 20151204
  Receipt Date: 20151228
  Transmission Date: 20160305
  Serious: Yes (Other)
  Sender: FDA-Public Use
  Company Number: CO-ABBVIE-15K-036-1512773-00

PATIENT
  Age: 11 Year
  Sex: Male

DRUGS (1)
  1. HUMIRA [Suspect]
     Active Substance: ADALIMUMAB
     Indication: JUVENILE IDIOPATHIC ARTHRITIS
     Route: 058
     Dates: start: 20150305

REACTIONS (3)
  - Sacroiliitis [Unknown]
  - Bone cyst [Recovering/Resolving]
  - Bone marrow oedema [Recovering/Resolving]

NARRATIVE: CASE EVENT DATE: 20150519
